FAERS Safety Report 6897481-0 (Version None)
Quarter: 2010Q3

REPORT INFORMATION
  Report Type: 
  Country: None (occurrence: None)
  Receive Date: 20100802
  Receipt Date: 20070608
  Transmission Date: 20110219
  Serious: No
  Sender: FDA-Public Use
  Company Number: US-PFIZER INC-2007048236

PATIENT
  Sex: Female
  Weight: 79.5 kg

DRUGS (14)
  1. LYRICA [Suspect]
     Indication: FIBROMYALGIA
     Dates: start: 20061101, end: 20070525
  2. SOMA [Concomitant]
  3. BACTRIM [Concomitant]
  4. AMITIZA [Concomitant]
  5. CONCERTA [Concomitant]
  6. LEXAPRO [Concomitant]
  7. OMEPRAZOLE [Concomitant]
  8. CLARINEX [Concomitant]
  9. ZONEGRAN [Concomitant]
  10. TAMSULOSIN HYDROCHLORIDE [Concomitant]
  11. VISTARIL [Concomitant]
  12. DIHYDROERGOTAMINE MESYLATE [Concomitant]
  13. ALBUTEROL [Concomitant]
  14. ZOFRAN [Concomitant]

REACTIONS (2)
  - ASTHMA [None]
  - RASH [None]
